FAERS Safety Report 22526755 (Version 2)
Quarter: 2024Q3

REPORT INFORMATION
  Report Type: Spontaneous
  Country: JP (occurrence: JP)
  Receive Date: 20230606
  Receipt Date: 20240705
  Transmission Date: 20241017
  Serious: Yes (Other)
  Sender: PFIZER
  Company Number: JP-PFIZER INC-PV202300098656

PATIENT
  Age: 66 Year
  Sex: Male
  Weight: 104.4 kg

DRUGS (12)
  1. SOLU-MEDROL [Suspect]
     Active Substance: METHYLPREDNISOLONE SODIUM SUCCINATE
     Indication: Prophylaxis
     Dosage: UNK
     Route: 065
     Dates: start: 20220602, end: 20220602
  2. CEFAZOLIN SODIUM [Concomitant]
     Active Substance: CEFAZOLIN SODIUM
     Indication: Adverse event
     Dosage: UNK
     Route: 065
     Dates: start: 20220526, end: 20220531
  3. TRULICITY [Concomitant]
     Active Substance: DULAGLUTIDE
     Dosage: UNK
     Route: 058
     Dates: start: 20220418
  4. NOVORAPID [Concomitant]
     Active Substance: INSULIN ASPART
     Indication: Adverse event
     Dosage: UNK
     Route: 058
     Dates: start: 20220524, end: 20240220
  5. ISCOTIN [Concomitant]
     Active Substance: ISONIAZID
     Dosage: UNK MG
     Route: 048
     Dates: start: 20220416, end: 20240115
  6. MIRCERA [Concomitant]
     Active Substance: METHOXY POLYETHYLENE GLYCOL-EPOETIN BETA
     Dosage: UNK
     Route: 065
     Dates: start: 20220404, end: 20240319
  7. MIRCERA [Concomitant]
     Active Substance: METHOXY POLYETHYLENE GLYCOL-EPOETIN BETA
     Dosage: UNK
     Route: 058
     Dates: start: 20230117, end: 20240319
  8. OCTREOTIDE [Concomitant]
     Active Substance: OCTREOTIDE\OCTREOTIDE ACETATE
     Indication: Lymphangiectasia
     Dosage: UNK
     Route: 058
     Dates: start: 20220408, end: 20220423
  9. OCTREOTIDE [Concomitant]
     Active Substance: OCTREOTIDE\OCTREOTIDE ACETATE
     Indication: Adverse event
     Dosage: UNK
     Route: 065
     Dates: start: 20220521, end: 20220913
  10. PYRIDOXAL [Concomitant]
     Active Substance: PYRIDOXAL
     Indication: Adverse event
     Dosage: UNK MG
     Route: 048
     Dates: start: 20220416, end: 20220513
  11. PYRIDOXAL [Concomitant]
     Active Substance: PYRIDOXAL
     Dosage: UNK
     Dates: start: 20220425
  12. TELMISARTAN [Concomitant]
     Active Substance: TELMISARTAN
     Dosage: UNK
     Route: 048
     Dates: start: 20220517

REACTIONS (3)
  - Acute respiratory failure [Unknown]
  - Pleural effusion [Unknown]
  - Pulmonary embolism [Unknown]

NARRATIVE: CASE EVENT DATE: 20220602
